FAERS Safety Report 9032615 (Version 1)
Quarter: 2013Q1

REPORT INFORMATION
  Report Type: Spontaneous
  Country: US (occurrence: None)
  Receive Date: 20130109
  Receipt Date: 20130109
  Transmission Date: 20140127
  Serious: Yes (Hospitalization)
  Sender: FDA-Public Use
  Company Number: 143672

PATIENT
  Age: 66 Year
  Sex: Male
  Weight: 68.95 kg

DRUGS (1)
  1. CERUBIDINE [Suspect]
     Indication: ACUTE MYELOID LEUKAEMIA
     Dosage: ONCE A DAY
     Route: 042
     Dates: start: 20090221, end: 20090223

REACTIONS (5)
  - Hyperthermia [None]
  - Bone marrow failure [None]
  - Streptococcal sepsis [None]
  - Enterococcal sepsis [None]
  - Acute myeloid leukaemia [None]
